FAERS Safety Report 12740095 (Version 2)
Quarter: 2016Q3

REPORT INFORMATION
  Report Type: Spontaneous
  Country: US (occurrence: US)
  Receive Date: 20160913
  Receipt Date: 20160927
  Transmission Date: 20161109
  Serious: No
  Sender: FDA-Public Use
  Company Number: US-ASTRAZENECA-2016SE84246

PATIENT
  Age: 18932 Day
  Sex: Female
  Weight: 113.4 kg

DRUGS (1)
  1. BYDUREON [Suspect]
     Active Substance: EXENATIDE
     Indication: TYPE 2 DIABETES MELLITUS
     Route: 058
     Dates: start: 20160602

REACTIONS (4)
  - Product quality issue [Unknown]
  - Injection site pain [Not Recovered/Not Resolved]
  - Injection site extravasation [Unknown]
  - Underdose [Not Recovered/Not Resolved]

NARRATIVE: CASE EVENT DATE: 201606
